FAERS Safety Report 7787481-0 (Version None)
Quarter: 2011Q3

REPORT INFORMATION
  Report Type: 
  Country: None (occurrence: None)
  Receive Date: 20110929
  Receipt Date: 20110920
  Transmission Date: 20111222
  Serious: Yes (Hospitalization)
  Sender: FDA-Public Use
  Company Number: US-ASTRAZENECA-2010SE35979

PATIENT
  Age: 72 Year
  Sex: Female

DRUGS (2)
  1. NEXIUM [Suspect]
     Indication: GASTROOESOPHAGEAL REFLUX DISEASE
     Route: 048
  2. PRILOSEC [Suspect]
     Route: 048

REACTIONS (5)
  - HYPERTONIC BLADDER [None]
  - OSTEOARTHRITIS [None]
  - CHOLELITHIASIS [None]
  - GALLBLADDER DISORDER [None]
  - BLADDER OBSTRUCTION [None]
